FAERS Safety Report 7161451-8 (Version None)
Quarter: 2010Q4

REPORT INFORMATION
  Report Type: 
  Country: None (occurrence: None)
  Receive Date: 20101215
  Receipt Date: 20101203
  Transmission Date: 20110411
  Serious: Yes (Other)
  Sender: FDA-Public Use
  Company Number: PHHY2010AR82541

PATIENT
  Sex: Female

DRUGS (1)
  1. ACLASTA [Suspect]
     Indication: OSTEOPOROSIS
     Dosage: 1 ANUAL AMPOULE
     Route: 042
     Dates: start: 20091001

REACTIONS (1)
  - CEREBROVASCULAR ACCIDENT [None]
